FAERS Safety Report 8838367 (Version 2)
Quarter: 2013Q2

REPORT INFORMATION
  Report Type: Spontaneous
  Country: DE (occurrence: DE)
  Receive Date: 20121012
  Receipt Date: 20130624
  Transmission Date: 20140414
  Serious: Yes (Other)
  Sender: FDA-Public Use
  Company Number: PHHY2012DE088198

PATIENT
  Sex: Male
  Weight: 1.68 kg

DRUGS (2)
  1. DOCETAXEL [Suspect]
     Route: 064
  2. CYCLOPHOSPHAMIDE [Suspect]
     Route: 064

REACTIONS (8)
  - Foetal growth restriction [Unknown]
  - Low birth weight baby [Unknown]
  - Hypoglycaemia [Unknown]
  - Convulsion [Unknown]
  - Apgar score abnormal [Unknown]
  - Premature baby [Unknown]
  - Thrombocytopenia [Unknown]
  - Foetal exposure during pregnancy [Unknown]
